FAERS Safety Report 6696424-2 (Version None)
Quarter: 2010Q2

REPORT INFORMATION
  Report Type: 
  Country: None (occurrence: None)
  Receive Date: 20100426
  Receipt Date: 20100416
  Transmission Date: 20101027
  Serious: Yes (Hospitalization, Other)
  Sender: FDA-Public Use
  Company Number: US-AMGEN-QUU401033

PATIENT
  Sex: Female
  Weight: 51.1 kg

DRUGS (18)
  1. NPLATE [Suspect]
     Indication: IDIOPATHIC THROMBOCYTOPENIC PURPURA
     Route: 058
     Dates: start: 20091026
  2. CORTICOSTEROIDS [Concomitant]
     Dates: start: 19990201
  3. IMMU-G [Concomitant]
     Dates: start: 19990401
  4. RITUXIMAB [Concomitant]
     Dates: start: 20030101
  5. ACTONEL [Concomitant]
     Route: 048
     Dates: start: 20070227
  6. ATENOLOL [Concomitant]
     Route: 048
     Dates: start: 20050803
  7. CALCIUM [Concomitant]
     Route: 048
  8. IRON [Concomitant]
     Route: 048
  9. FLEXERIL [Concomitant]
     Route: 048
     Dates: start: 20100105
  10. LIPITOR [Concomitant]
     Route: 048
  11. POTASSIUM CHLORIDE [Concomitant]
     Route: 048
  12. PRILOSEC [Concomitant]
     Route: 048
  13. TRAMADOL HYDROCHLORIDE [Concomitant]
     Route: 048
  14. TYLENOL W/ CODEINE NO. 3 [Concomitant]
     Route: 048
     Dates: start: 20100326
  15. VITAMIN D [Concomitant]
     Route: 048
  16. HYDROCHLOROTHIAZIDE [Concomitant]
     Route: 048
     Dates: start: 20070327
  17. VITAMIN B-12 [Concomitant]
  18. ZANTAC [Concomitant]

REACTIONS (6)
  - CHOLELITHIASIS [None]
  - DIVERTICULITIS [None]
  - HIATUS HERNIA [None]
  - PYELONEPHRITIS ACUTE [None]
  - RENAL CYST [None]
  - URINARY TRACT INFECTION STAPHYLOCOCCAL [None]
